FAERS Safety Report 14649041 (Version 1)
Quarter: 2018Q1

REPORT INFORMATION
  Report Type: Spontaneous
  Country: US (occurrence: US)
  Receive Date: 20180316
  Receipt Date: 20180316
  Transmission Date: 20180509
  Serious: No
  Sender: FDA-Public Use
  Company Number: US-ELI_LILLY_AND_COMPANY-US201802008101

PATIENT
  Sex: Female

DRUGS (3)
  1. HUMALOG [Suspect]
     Active Substance: INSULIN LISPRO
     Indication: TYPE 2 DIABETES MELLITUS
     Dosage: 15 U, TID, BEFORE MEALS
     Route: 058
     Dates: start: 200802
  2. HUMALOG [Interacting]
     Active Substance: INSULIN LISPRO
     Dosage: 15 U, TID, BEFORE MEALS
     Route: 058
  3. LANTUS [Interacting]
     Active Substance: INSULIN GLARGINE
     Indication: TYPE 2 DIABETES MELLITUS
     Dosage: 40 U, PRN
     Route: 065

REACTIONS (5)
  - Cataract [Not Recovered/Not Resolved]
  - Blood glucose decreased [Unknown]
  - Blood glucose abnormal [Not Recovered/Not Resolved]
  - Metabolic disorder [Not Recovered/Not Resolved]
  - Drug interaction [Unknown]

NARRATIVE: CASE EVENT DATE: 2013
